FAERS Safety Report 12139981 (Version 1)
Quarter: 2016Q1

REPORT INFORMATION
  Report Type: Spontaneous
  Country: US (occurrence: US)
  Receive Date: 20160303
  Receipt Date: 20160303
  Transmission Date: 20160526
  Serious: Yes (Other)
  Sender: FDA-Public Use
  Company Number: US-AMGEN-USASP2016025278

PATIENT
  Age: 86 Year
  Sex: Male
  Weight: 80.73 kg

DRUGS (6)
  1. PROCRIT [Suspect]
     Active Substance: ERYTHROPOIETIN
     Indication: MYELODYSPLASTIC SYNDROME
     Dosage: 60000 UNITS, WEEKLY
     Route: 058
     Dates: start: 20150303, end: 201512
  2. CARTIA XT [Concomitant]
     Active Substance: DILTIAZEM HYDROCHLORIDE
     Dosage: UNK
  3. FLOMAX [Concomitant]
     Active Substance: TAMSULOSIN HYDROCHLORIDE
     Dosage: UNK
  4. AMBIEN [Concomitant]
     Active Substance: ZOLPIDEM TARTRATE
     Dosage: 5 MG, UNK
  5. PROCRIT [Suspect]
     Active Substance: ERYTHROPOIETIN
     Dosage: 60000 UNITS, TWICE WEEKLY
     Route: 058
     Dates: start: 201512
  6. PRAVASTATIN [Concomitant]
     Active Substance: PRAVASTATIN\PRAVASTATIN SODIUM
     Dosage: 40 MG, UNK

REACTIONS (4)
  - Off label use [Not Recovered/Not Resolved]
  - Blood count abnormal [Unknown]
  - Drug ineffective [Unknown]
  - Transfusion [Not Recovered/Not Resolved]

NARRATIVE: CASE EVENT DATE: 201503
